FAERS Safety Report 4345176-X (Version None)
Quarter: 2004Q2

REPORT INFORMATION
  Report Type: 
  Country: None (occurrence: None)
  Receive Date: 20040423
  Receipt Date: 20040413
  Transmission Date: 20050107
  Serious: Yes (Hospitalization)
  Sender: FDA-Public Use
  Company Number: GR-BRISTOL-MYERS SQUIBB COMPANY-12558078

PATIENT
  Age: 80 Year
  Sex: Female

DRUGS (10)
  1. CAPTOPRIL + HCTZ [Suspect]
     Indication: HYPERTENSION
     Route: 048
  2. ISCOVER TABS 75 MG [Suspect]
     Indication: ACUTE CORONARY SYNDROME
     Route: 048
  3. RAMIPRIL [Suspect]
     Indication: HYPERTENSION
     Route: 048
  4. LACIDIPINE [Suspect]
     Indication: HYPERTENSION
     Route: 048
  5. GLYCERYL TRINITRATE [Suspect]
     Indication: ANGINA PECTORIS
     Route: 048
  6. MELOXICAM [Suspect]
     Indication: ANTIINFLAMMATORY THERAPY
  7. FUROSEMIDE [Suspect]
     Route: 048
  8. NEBIVOLOL [Suspect]
     Indication: HYPERTENSION
     Route: 048
  9. ENOXAPARIN SODIUM [Concomitant]
     Indication: ACUTE CORONARY SYNDROME
     Route: 058
     Dates: start: 20040320, end: 20040324
  10. FONDAPARINUX SODIUM [Concomitant]
     Indication: ACUTE CORONARY SYNDROME
     Route: 058
     Dates: start: 20040320, end: 20040324

REACTIONS (3)
  - ANAEMIA [None]
  - INJECTION SITE HAEMORRHAGE [None]
  - TRAUMATIC HAEMATOMA [None]
